FAERS Safety Report 15175761 (Version 10)
Quarter: 2020Q3

REPORT INFORMATION
  Report Type: Spontaneous
  Country: PT (occurrence: PT)
  Receive Date: 20180720
  Receipt Date: 20200708
  Transmission Date: 20201102
  Serious: Yes (Hospitalization, Other)
  Sender: FDA-Public Use
  Company Number: PT-MYLANLABS-2018M1054134

PATIENT
  Age: 57 Year
  Sex: Male

DRUGS (21)
  1. ISOSORBIDE DINITRATE. [Suspect]
     Active Substance: ISOSORBIDE DINITRATE
     Dosage: 5 MILLIGRAM
  2. SUGAMMADEX [Suspect]
     Active Substance: SUGAMMADEX
     Dosage: 200 MILLIGRAM, QW (200 MG, WE)
  3. REMIFENTANIL [Suspect]
     Active Substance: REMIFENTANIL
     Indication: MAINTENANCE OF ANAESTHESIA
     Dosage: 0.2 ?G, UNK, 0.2 MCG/KG/MIN
     Route: 042
  4. ACETAMINOPHEN. [Suspect]
     Active Substance: ACETAMINOPHEN
     Indication: PRODUCT USED FOR UNKNOWN INDICATION
     Dosage: 1000 MG, UNK
  5. RANITIDINE. [Suspect]
     Active Substance: RANITIDINE
     Indication: PREMEDICATION
     Dosage: 50 MG, UNK
     Route: 042
  6. DROPERIDOL. [Suspect]
     Active Substance: DROPERIDOL
     Dosage: 1.25 MILLIGRAM, UNK
  7. ERYTHROMYCIN. [Suspect]
     Active Substance: ERYTHROMYCIN
     Dosage: 1000 MILLIGRAM
     Route: 065
  8. DROPERIDOL. [Suspect]
     Active Substance: DROPERIDOL
     Indication: PRODUCT USED FOR UNKNOWN INDICATION
     Dosage: 1.25 MG
     Route: 065
  9. REMIFENTANIL [Suspect]
     Active Substance: REMIFENTANIL
     Dosage: UNK
     Route: 042
  10. DROPERIDOL. [Suspect]
     Active Substance: DROPERIDOL
     Dosage: 1 MG, UNK
  11. METOCLOPRAMIDE. [Suspect]
     Active Substance: METOCLOPRAMIDE
     Indication: PREMEDICATION
     Dosage: 10 MG, UNK
     Route: 065
  12. ROCURONIUM [Suspect]
     Active Substance: ROCURONIUM BROMIDE
     Indication: ANAESTHESIA
     Dosage: 50 MG, UNK
     Route: 065
  13. PROPOFOL. [Suspect]
     Active Substance: PROPOFOL
     Indication: ANAESTHESIA
     Dosage: 200 MG, (100?200 MCG/KG/MIN)
     Route: 042
  14. SUGAMMADEX [Suspect]
     Active Substance: SUGAMMADEX
     Indication: GENERAL ANAESTHESIA
     Dosage: 20 MG, TOTAL
  15. PARACETAMOL [Suspect]
     Active Substance: ACETAMINOPHEN
     Indication: PRODUCT USED FOR UNKNOWN INDICATION
     Dosage: 1000 MG, TOTAL
  16. REMIFENTANIL [Suspect]
     Active Substance: REMIFENTANIL
     Indication: ANAESTHESIA
     Dosage: 100?500MCG/KG/MIN (MAINTANANCE OF ANAESTHESIA)
     Route: 042
  17. PROPOFOL. [Suspect]
     Active Substance: PROPOFOL
     Dosage: 200 MILLIGRAM (100 UG, UNK,PERFUSION 100?200 MCG/KG/MIN)
  18. SUGAMMADEX [Suspect]
     Active Substance: SUGAMMADEX
     Dosage: 200 MILLIGRAM, TOTAL
  19. ISOSORBIDE DINITRATE. [Suspect]
     Active Substance: ISOSORBIDE DINITRATE
     Indication: PRODUCT USED FOR UNKNOWN INDICATION
     Dosage: 1?2 MG/H
     Route: 042
  20. ERYTHROMYCIN. [Suspect]
     Active Substance: ERYTHROMYCIN
     Indication: ANTIBIOTIC PROPHYLAXIS
     Dosage: 1000 MG, UNK
     Route: 042
  21. MIDAZOLAM. [Suspect]
     Active Substance: MIDAZOLAM
     Indication: PREMEDICATION
     Dosage: 2 MG, UNK
     Route: 065

REACTIONS (7)
  - Hyperhidrosis [Recovered/Resolved]
  - Epistaxis [Recovered/Resolved]
  - Malaise [Recovered/Resolved]
  - Kounis syndrome [Unknown]
  - Hypertension [Recovered/Resolved]
  - Anaphylactic reaction [Unknown]
  - Tachycardia [Recovered/Resolved]
